FAERS Safety Report 9211123 (Version 2)
Quarter: 2013Q2

REPORT INFORMATION
  Report Type: Spontaneous
  Country: US (occurrence: US)
  Receive Date: 20130404
  Receipt Date: 20130530
  Transmission Date: 20140414
  Serious: No
  Sender: FDA-Public Use
  Company Number: US-009507513-1304USA001940

PATIENT
  Sex: Female
  Weight: 126.53 kg

DRUGS (4)
  1. MIRALAX [Suspect]
     Indication: CONSTIPATION
     Dosage: UNK, UNKNOWN
     Route: 048
     Dates: end: 201303
  2. MIRALAX [Suspect]
     Indication: MEDICAL OBSERVATION
     Dosage: 1 CAP IN 6-8OZ, QD
     Route: 048
     Dates: end: 201301
  3. OXYCODONE [Concomitant]
     Indication: OSTEOARTHRITIS
  4. NAPROXEN [Concomitant]
     Indication: OSTEOARTHRITIS

REACTIONS (1)
  - Drug ineffective [Unknown]
